FAERS Safety Report 9309903 (Version 1)
Quarter: 2013Q2

REPORT INFORMATION
  Report Type: Spontaneous
  Country: FR (occurrence: FR)
  Receive Date: 20130526
  Receipt Date: 20130526
  Transmission Date: 20140414
  Serious: Yes (Hospitalization)
  Sender: FDA-Public Use
  Company Number: FR-B.I. PHARMACEUTICALS,INC./RIDGEFIELD-2013-FF-01444FF

PATIENT
  Age: 82 Year
  Sex: Male

DRUGS (11)
  1. PRADAXA [Suspect]
     Indication: THROMBOSIS PROPHYLAXIS
     Dosage: 220 MG
     Route: 048
     Dates: start: 20130207, end: 20130209
  2. AUGMENTIN [Suspect]
     Dosage: 3 G
     Route: 048
     Dates: start: 20130209, end: 20130214
  3. PREVISCAN [Suspect]
     Indication: THROMBOSIS PROPHYLAXIS
     Dosage: 5 MG
     Route: 048
     Dates: end: 20130206
  4. CORDARONE [Suspect]
     Indication: ATRIAL FIBRILLATION
     Dosage: 100 MG
     Route: 048
  5. COZAAR [Concomitant]
     Indication: CARDIOMYOPATHY
     Dosage: 50 MG
     Route: 048
  6. CARDENSIEL [Concomitant]
     Indication: CARDIOMYOPATHY
     Dosage: 5 MG
     Route: 048
  7. DIAMICRON [Concomitant]
     Indication: TYPE 2 DIABETES MELLITUS
     Dosage: 15 MG
     Route: 048
  8. LASILIX [Concomitant]
     Dosage: 80 MG
     Route: 048
  9. DIFFU K [Concomitant]
     Dosage: 600 MG
     Route: 048
  10. EUPRESSYL [Concomitant]
     Dosage: 60 MG
     Route: 048
  11. ROVAMYCINE [Concomitant]
     Route: 048
     Dates: start: 20130201, end: 20130205

REACTIONS (2)
  - International normalised ratio increased [Recovered/Resolved]
  - Haemorrhage [Recovered/Resolved]
